FAERS Safety Report 4632122-4 (Version None)
Quarter: 2005Q2

REPORT INFORMATION
  Report Type: 
  Country: None (occurrence: None)
  Receive Date: 20050411
  Receipt Date: 20050330
  Transmission Date: 20051028
  Serious: Yes (Other)
  Sender: FDA-Public Use
  Company Number: HQWYE648204APR05

PATIENT
  Sex: Female

DRUGS (7)
  1. ENBREL [Suspect]
     Indication: DRUG USE FOR UNKNOWN INDICATION
     Route: 058
  2. NEORAL [Suspect]
     Indication: DRUG USE FOR UNKNOWN INDICATION
     Dosage: DOSE AND FREQUENCY UNKNOWN
     Route: 048
  3. METHOTREXATE [Suspect]
  4. PREDNISOLONE [Concomitant]
     Dosage: 10 MG AT UNKNOWN FREQUENCY
  5. MOBIC [Concomitant]
     Dosage: 15 MG AT UNKNOWN FREQUENCY
     Route: 048
  6. DEPO-PROVERA [Concomitant]
  7. AROPAX (GLAXOSMITHKLINE) [Concomitant]
     Dosage: 20 MG AT UNKNOWN FREQUENCY
     Route: 048

REACTIONS (1)
  - MALIGNANT MELANOMA [None]
